FAERS Safety Report 6899226-7 (Version None)
Quarter: 2010Q3

REPORT INFORMATION
  Report Type: 
  Country: None (occurrence: None)
  Receive Date: 20100802
  Receipt Date: 20080225
  Transmission Date: 20110219
  Serious: No
  Sender: FDA-Public Use
  Company Number: US-PFIZER INC-2007108944

PATIENT
  Sex: Female

DRUGS (7)
  1. LYRICA [Suspect]
     Indication: PAIN
     Dates: start: 20071010, end: 20071017
  2. ZOLOFT [Concomitant]
  3. BUSPAR [Concomitant]
  4. ADVAIR DISKUS 100/50 [Concomitant]
  5. MONTELUKAST SODIUM [Concomitant]
  6. SEROQUEL [Concomitant]
  7. CLONAZEPAM [Concomitant]

REACTIONS (2)
  - CONFUSIONAL STATE [None]
  - DISORIENTATION [None]
